FAERS Safety Report 24316296 (Version 5)
Quarter: 2024Q4

REPORT INFORMATION
  Report Type: Spontaneous
  Country: FI (occurrence: FI)
  Receive Date: 20240913
  Receipt Date: 20241204
  Transmission Date: 20250115
  Serious: Yes (Hospitalization, Other)
  Sender: MYLAN
  Company Number: FI-GLAXOSMITHKLINE-FI2024EME105984

PATIENT
  Age: 59 Year
  Sex: Female

DRUGS (25)
  1. LYRICA [Suspect]
     Active Substance: PREGABALIN
     Indication: Neuralgia
     Dosage: 600 MILLIGRAM, QD
     Route: 048
     Dates: start: 2010
  2. LYRICA [Suspect]
     Active Substance: PREGABALIN
     Dosage: UNK (START DATE: 02-AUG-2023)
     Route: 065
  3. ACRIVASTINE\PSEUDOEPHEDRINE HYDROCHLORIDE [Suspect]
     Active Substance: ACRIVASTINE\PSEUDOEPHEDRINE HYDROCHLORIDE
     Indication: Hypersensitivity
     Dosage: UNK, Q8H (TID)
     Route: 048
  4. ACRIVASTINE\PSEUDOEPHEDRINE HYDROCHLORIDE [Suspect]
     Active Substance: ACRIVASTINE\PSEUDOEPHEDRINE HYDROCHLORIDE
     Indication: Rhinitis
     Dosage: UNK, 8/60 MG, 3 CAPSULES FOR 2 DAYS FOLLOWED BY 2 TIMES WEEKLY FOR UP TO 10 DAYS
     Route: 048
  5. ACRIVASTINE\PSEUDOEPHEDRINE HYDROCHLORIDE [Suspect]
     Active Substance: ACRIVASTINE\PSEUDOEPHEDRINE HYDROCHLORIDE
     Indication: Nasal congestion
  6. ASPIRIN [Suspect]
     Active Substance: ASPIRIN
     Indication: Anticoagulant therapy
     Dosage: 1 DOSAGE FORM, QD (IN THE MORNING , 50 MG ENTEROTABLET 100 X 4)
     Route: 048
  7. NORSPAN [Suspect]
     Active Substance: BUPRENORPHINE
     Indication: Product used for unknown indication
     Dosage: 10 MICROGRAM, QH,(WE, 10 MCG/H, DEPOT PATCH)
     Route: 065
  8. ROSUVASTATIN [Concomitant]
     Active Substance: ROSUVASTATIN
     Indication: Lipid metabolism disorder
     Dosage: 5 MILLIGRAM, QD (5 MG, QD, 100 X 8)
     Route: 048
  9. LACTRASE [Concomitant]
     Indication: Product used for unknown indication
     Dosage: UNK, 1-2 CAPSULES AS NEEDED
     Route: 048
  10. FLUOXETINE HYDROCHLORIDE [Concomitant]
     Active Substance: FLUOXETINE HYDROCHLORIDE
     Indication: Antipsychotic therapy
     Dosage: 1 DOSAGE FORM, QD (1 DF, QD, IN THE MORNING. MENTAL MEDICINE, 100 X 4)
     Route: 048
  11. GABAPENTIN [Concomitant]
     Active Substance: GABAPENTIN
     Indication: Neuralgia
     Dosage: UNK,INITIALLY 4+3+3 TABLETS PER DAY FOR A WEEK, THEN 4+3+4 TABLETS PER DAY.
     Route: 048
  12. MELATONIN VITABALANS [Concomitant]
     Indication: Sleep disorder
     Dosage: 2 DOSAGE FORM, QD
     Route: 048
  13. MELATONIN VITABALANS [Concomitant]
     Dosage: 5 MG X1
     Route: 065
  14. Tenox [Concomitant]
     Indication: Sleep disorder
     Dosage: 20 MILLIGRAM, QD
     Route: 048
  15. BETAMETHASONE VALERATE [Concomitant]
     Active Substance: BETAMETHASONE VALERATE
     Indication: Rash
     Dosage: UNK UNK, QD, 1 OINTMENT ONCE A DAY
     Route: 065
  16. ONDANSETRON [Concomitant]
     Active Substance: ONDANSETRON
     Indication: Vomiting
     Dosage: 1 DOSAGE FORM, PRN (1 DF, IF NEEDED)
     Route: 048
  17. ONDANSETRON [Concomitant]
     Active Substance: ONDANSETRON
     Indication: Nausea
  18. MIRTAZAPINE [Concomitant]
     Active Substance: MIRTAZAPINE
     Indication: Product used for unknown indication
     Dosage: 15 MILLIGRAM, QD (15 MG, QD, IN THE EVENING)
     Route: 048
  19. HYDROCORTISONE\MICONAZOLE NITRATE [Concomitant]
     Active Substance: HYDROCORTISONE\MICONAZOLE NITRATE
     Indication: Rash
     Dosage: UNK, 20/10 MG/G EMULSION OINTMENT
     Route: 065
  20. FUCICORT LIPID [Concomitant]
     Indication: Rash
     Dosage: UNK, 20/1 MG/G EMULSION, 30 X 3
     Route: 065
  21. PANADOL [Concomitant]
     Active Substance: ACETAMINOPHEN
     Indication: Pain
     Dosage: 2 DOSAGE FORM, BID (2 DF, BID, 48 X 1CONTROLLED-RELEASE TABLET)
     Route: 048
  22. LEVOCABASTINE [Concomitant]
     Active Substance: LEVOCABASTINE
     Indication: Product used for unknown indication
     Dosage: 0.5 MG/ML, TID,2 SPRAYS IN EACH NOSTRIL
     Route: 065
  23. BISOPROLOL [Concomitant]
     Active Substance: BISOPROLOL
     Indication: Heart rate irregular
     Dosage: 2.5 MILLIGRAM, PRN (2,5 MG, 2 TABLETS IN THE MORNING AND 2 TABLETS IN THE EVENING)
     Route: 048
  24. GABAPENTIN [Concomitant]
     Active Substance: GABAPENTIN
     Indication: Neuralgia
     Dosage: UNK
     Route: 048
  25. BISOPROLOL SANDOZ [Concomitant]
     Indication: Heart rate irregular
     Dosage: 2 DOSAGE FORM, BID (2,5 MG, 2 TABLETS IN THE MORNING AND 2 TABLETS IN THE EVENING)
     Route: 065

REACTIONS (56)
  - Posterior reversible encephalopathy syndrome [Unknown]
  - Hemiplegia [Unknown]
  - Facial paralysis [Unknown]
  - Osmotic demyelination syndrome [Unknown]
  - Brain stem syndrome [Unknown]
  - Subarachnoid haemorrhage [Unknown]
  - Obstructive sleep apnoea syndrome [Unknown]
  - Streptococcal sepsis [Unknown]
  - Ophthalmoplegia [Unknown]
  - Tooth loss [Unknown]
  - Haemorrhage [Unknown]
  - Sleep apnoea syndrome [Unknown]
  - Muscular weakness [Not Recovered/Not Resolved]
  - Movement disorder [Unknown]
  - Cerebrovascular disorder [Unknown]
  - Obesity [Unknown]
  - Obsessive-compulsive disorder [Unknown]
  - Blood alkaline phosphatase increased [Unknown]
  - Aphasia [Unknown]
  - Mobility decreased [Unknown]
  - Overweight [Unknown]
  - Fear [Unknown]
  - White matter lesion [Unknown]
  - Paraesthesia oral [Unknown]
  - Poor quality sleep [Unknown]
  - Sciatica [Unknown]
  - Stress [Unknown]
  - Histrionic personality disorder [Unknown]
  - Facial discomfort [Recovered/Resolved]
  - Fear of death [Unknown]
  - Condition aggravated [Unknown]
  - Eye movement disorder [Unknown]
  - Nervous system disorder [Unknown]
  - Spinal pain [Unknown]
  - Anxiety [Unknown]
  - Hypoacusis [Unknown]
  - Generalised anxiety disorder [Unknown]
  - Memory impairment [Unknown]
  - Visual acuity reduced [Unknown]
  - Headache [Unknown]
  - Weight increased [Unknown]
  - Back pain [Unknown]
  - Nausea [Unknown]
  - Hyperhidrosis [Unknown]
  - Depression [Unknown]
  - Heart rate decreased [Unknown]
  - Oedema [Unknown]
  - Pain in extremity [Unknown]
  - Dysphagia [Unknown]
  - Speech disorder [Recovering/Resolving]
  - Hypertension [Unknown]
  - Insomnia [Unknown]
  - Cognitive disorder [Unknown]
  - Dysarthria [Unknown]
  - Blood pressure increased [Unknown]
  - Blood pressure systolic increased [Unknown]

NARRATIVE: CASE EVENT DATE: 20200301
